FAERS Safety Report 9930995 (Version 1)
Quarter: 2014Q1

REPORT INFORMATION
  Report Type: Report from Study
  Country: BR (occurrence: BR)
  Receive Date: 20140227
  Receipt Date: 20140227
  Transmission Date: 20141002
  Serious: Yes (Other)
  Sender: FDA-Public Use
  Company Number: PHHY2014BR023854

PATIENT
  Sex: Male

DRUGS (2)
  1. DIOVAN AMLO [Suspect]
     Dosage: UNK DF (160/5MG), UNK
  2. DIOVAN [Suspect]
     Dosage: UNK DF (160MG), UNK

REACTIONS (5)
  - Infarction [Unknown]
  - Malaise [Unknown]
  - Oedema peripheral [Unknown]
  - Oedema [Unknown]
  - Asthenia [Unknown]
